FAERS Safety Report 7060903-9 (Version None)
Quarter: 2010Q4

REPORT INFORMATION
  Report Type: 
  Country: None (occurrence: None)
  Receive Date: 20101025
  Receipt Date: 20101018
  Transmission Date: 20110411
  Serious: Yes (Death, Hospitalization)
  Sender: FDA-Public Use
  Company Number: PHHY2010ZA66965

PATIENT
  Sex: Male

DRUGS (5)
  1. GLEEVEC [Suspect]
     Dosage: 400 MG DAILY
  2. GLEEVEC [Suspect]
     Dosage: 800 MG DAILY
     Dates: start: 20100831
  3. METHOTREXATE [Concomitant]
     Dosage: 12.5 MG
  4. CYTARABINE [Concomitant]
     Dosage: 50 MG
  5. DEXAMETHASONE [Concomitant]
     Dosage: 2 MG WEEKLY

REACTIONS (6)
  - BLAST CELL CRISIS [None]
  - CEREBRAL DECOMPRESSION [None]
  - HEADACHE [None]
  - LEUKAEMIC INFILTRATION BRAIN [None]
  - SUBDURAL HAEMATOMA [None]
  - THROMBOCYTOPENIA [None]
